FAERS Safety Report 14322327 (Version 1)
Quarter: 2017Q4

REPORT INFORMATION
  Report Type: Report from Study
  Country: US (occurrence: US)
  Receive Date: 20171225
  Receipt Date: 20171225
  Transmission Date: 20180321
  Serious: Yes (Hospitalization)
  Sender: FDA-Public Use
  Company Number: PHHO2016US012747

PATIENT
  Age: 73 Year
  Sex: Male
  Weight: 109.2 kg

DRUGS (19)
  1. METOPROLOL SUCCINATE. [Concomitant]
     Active Substance: METOPROLOL SUCCINATE
     Indication: HYPERTENSION
     Dosage: 100 MG, QD
     Route: 048
     Dates: start: 2013
  2. BLINDED NO TREATMENT RECEIVED [Suspect]
     Active Substance: INVESTIGATIONAL PRODUCT
     Indication: CARDIOVASCULAR EVENT PROPHYLAXIS
     Dosage: CODE NOT BROKEN
     Route: 058
     Dates: start: 2013, end: 20170725
  3. OLMESARTAN [Concomitant]
     Active Substance: OLMESARTAN
     Indication: HYPERTENSION
     Dosage: 10 MG,  QAM
     Route: 048
     Dates: start: 2014
  4. DOXAZOCIN [Concomitant]
     Active Substance: DOXAZOSIN MESYLATE
     Indication: HYPERTENSION
     Dosage: 2 MG, QD
     Route: 065
     Dates: start: 20160827
  5. ACZ885 [Suspect]
     Active Substance: CANAKINUMAB
     Indication: CARDIOVASCULAR EVENT PROPHYLAXIS
     Dosage: 150 MG, UNK
     Route: 058
     Dates: start: 20171012
  6. LANTUS [Concomitant]
     Active Substance: INSULIN GLARGINE
     Dosage: 40 U, BID
     Dates: start: 20160827
  7. METOPROLOL. [Concomitant]
     Active Substance: METOPROLOL
     Indication: HYPERTENSION
     Dosage: 100 MG, BID
     Route: 065
     Dates: start: 20120707
  8. BLINDED ACZ885 [Suspect]
     Active Substance: CANAKINUMAB
     Indication: CARDIOVASCULAR EVENT PROPHYLAXIS
     Dosage: CODE NOT BROKEN
     Route: 058
     Dates: start: 2013, end: 20170725
  9. ELIQUIS [Concomitant]
     Active Substance: APIXABAN
     Indication: THROMBOSIS PROPHYLAXIS
     Dosage: 5 MG, BID
     Route: 065
     Dates: start: 20141030
  10. BLINDED PLACEBO [Suspect]
     Active Substance: INVESTIGATIONAL PRODUCT
     Indication: CARDIOVASCULAR EVENT PROPHYLAXIS
     Dosage: CODE NOT BROKEN
     Route: 058
     Dates: start: 2013, end: 20170725
  11. METOPROLOL SUCCINATE. [Concomitant]
     Active Substance: METOPROLOL SUCCINATE
     Indication: HYPERTENSION
  12. LANTUS [Concomitant]
     Active Substance: INSULIN GLARGINE
     Indication: TYPE 2 DIABETES MELLITUS
     Dosage: 24 MG, BID
     Route: 058
     Dates: start: 2015
  13. LASIX [Concomitant]
     Active Substance: FUROSEMIDE
     Dosage: 40 UNK, UNK
     Route: 048
     Dates: start: 20150429
  14. METOPROLOL SUCCINATE. [Concomitant]
     Active Substance: METOPROLOL SUCCINATE
     Indication: PROPHYLAXIS
  15. LASIX [Concomitant]
     Active Substance: FUROSEMIDE
     Indication: CARDIAC FAILURE CHRONIC
     Dosage: 20 MG, QD
     Route: 048
     Dates: start: 2014, end: 20170309
  16. DOXAZOSIN [Concomitant]
     Active Substance: DOXAZOSIN\DOXAZOSIN MESYLATE
     Indication: HYPERTENSION
     Dosage: 2 MG, PRN
     Route: 048
     Dates: start: 2013
  17. OXYCONTIN [Concomitant]
     Active Substance: OXYCODONE HYDROCHLORIDE
     Indication: PAIN
     Dosage: 20 MG, BID
     Route: 048
     Dates: start: 2015
  18. NOVOLOG [Concomitant]
     Active Substance: INSULIN ASPART
     Indication: TYPE 2 DIABETES MELLITUS
     Dosage: 12 IU, TID
     Route: 065
     Dates: start: 20120724
  19. BENICAR [Concomitant]
     Active Substance: OLMESARTAN MEDOXOMIL
     Indication: HYPERTENSION
     Dosage: 10 MG, QD
     Route: 065
     Dates: start: 20160825

REACTIONS (3)
  - Cardiac failure acute [Recovered/Resolved]
  - Cardiac failure acute [Recovered/Resolved]
  - Coronary artery disease [Recovered/Resolved]

NARRATIVE: CASE EVENT DATE: 20160819
